FAERS Safety Report 6083187-7 (Version None)
Quarter: 2009Q1

REPORT INFORMATION
  Report Type: 
  Country: None (occurrence: None)
  Receive Date: 20090219
  Receipt Date: 20090217
  Transmission Date: 20090719
  Serious: Yes (Hospitalization, Other)
  Sender: FDA-Public Use
  Company Number: NZ-BAYER-200913463GPV

PATIENT
  Age: 35 Year
  Sex: Female
  Weight: 48 kg

DRUGS (1)
  1. BETAFERON [Suspect]
     Indication: MULTIPLE SCLEROSIS
     Route: 058
     Dates: start: 20080401

REACTIONS (1)
  - SKIN NECROSIS [None]
